FAERS Safety Report 9530014 (Version 1)
Quarter: 2013Q2

REPORT INFORMATION
  Report Type: Spontaneous
  Country: US (occurrence: None)
  Receive Date: 20130402
  Receipt Date: 20130402
  Transmission Date: 20140414
  Serious: Yes (Hospitalization, Other)
  Sender: FDA-Public Use
  Company Number: RB-48098-2012

PATIENT
  Age: 29 Year
  Sex: Female

DRUGS (11)
  1. SUBOXONE (8 MG, 8 MG) [Suspect]
     Indication: PRODUCT USED FOR UNKNOWN INDICATION
     Dosage: 24 MG, SUBOXONE FILM UNKNOWN
     Dates: start: 20121016, end: 20121217
  2. ANTIHYPERTENSIVES [Concomitant]
  3. BUTALBITAL, ACETAMINOPHEN + CAFFEINE [Concomitant]
  4. PREDNISONE [Concomitant]
  5. PROAIR [Concomitant]
  6. ADVAIR [Concomitant]
  7. COMBIVENT [Concomitant]
  8. B-12 [Concomitant]
  9. FLEXERIL [Concomitant]
  10. GABAPENTIN [Concomitant]
  11. LASIX [Suspect]

REACTIONS (12)
  - Hallucination [None]
  - Abnormal behaviour [None]
  - Tachyphrenia [None]
  - Blood potassium decreased [None]
  - Wrong technique in drug usage process [None]
  - Speech disorder [None]
  - Insomnia [None]
  - Dyspnoea [None]
  - Dry mouth [None]
  - Chest pain [None]
  - Blood pressure fluctuation [None]
  - Road traffic accident [None]
